FAERS Safety Report 22143054 (Version 1)
Quarter: 2023Q1

REPORT INFORMATION
  Report Type: Spontaneous
  Country: US (occurrence: US)
  Receive Date: 20230327
  Receipt Date: 20230327
  Transmission Date: 20230418
  Serious: Yes (Death)
  Sender: FDA-Public Use
  Company Number: US-002147023-NVSC2023US070742

PATIENT
  Sex: Male
  Weight: 90 kg

DRUGS (1)
  1. KYMRIAH [Suspect]
     Active Substance: TISAGENLECLEUCEL
     Indication: Follicular lymphoma
     Dosage: 3.7E8 CAR POSITIVE VIABLE T CELLS, ONCE/SINGLE
     Route: 042
     Dates: start: 20221027, end: 20221027

REACTIONS (1)
  - Death [Fatal]
